FAERS Safety Report 7602634-X (Version None)
Quarter: 2011Q2

REPORT INFORMATION
  Report Type: 
  Country: None (occurrence: None)
  Receive Date: 20110629
  Receipt Date: 20110620
  Transmission Date: 20111010
  Serious: Yes (Other)
  Sender: FDA-Public Use
  Company Number: 2011SP028758

PATIENT
  Age: 50 Year
  Sex: Female

DRUGS (1)
  1. PROVENTIL-HFA [Suspect]
     Indication: RESPIRATORY DISORDER
     Dosage: ; INH
     Route: 055

REACTIONS (3)
  - PALPITATIONS [None]
  - PULMONARY OEDEMA [None]
  - DIAPHRAGMATIC DISORDER [None]
